FAERS Safety Report 7818674-1 (Version None)
Quarter: 2011Q4

REPORT INFORMATION
  Report Type: 
  Country: None (occurrence: None)
  Receive Date: 20111018
  Receipt Date: 20111010
  Transmission Date: 20120403
  Serious: Yes (Hospitalization)
  Sender: FDA-Public Use
  Company Number: US-BIOGENIDEC-2011BI039119

PATIENT
  Sex: Male

DRUGS (2)
  1. TYSABRI [Suspect]
     Indication: MULTIPLE SCLEROSIS
     Route: 042
     Dates: start: 20100930
  2. TYSABRI [Suspect]
     Route: 042
     Dates: start: 20071003, end: 20080912

REACTIONS (12)
  - MUSCULOSKELETAL DISORDER [None]
  - HYPOAESTHESIA [None]
  - PARAESTHESIA [None]
  - MUSCULOSKELETAL PAIN [None]
  - FALL [None]
  - ANXIETY [None]
  - MUSCULAR WEAKNESS [None]
  - ABASIA [None]
  - ASTHENIA [None]
  - PAIN IN EXTREMITY [None]
  - MULTIPLE SCLEROSIS [None]
  - ARTHRALGIA [None]
